FAERS Safety Report 5348486-2 (Version None)
Quarter: 2007Q2

REPORT INFORMATION
  Report Type: 
  Country: None (occurrence: None)
  Receive Date: 20070605
  Receipt Date: 20070531
  Transmission Date: 20071010
  Serious: Yes (Hospitalization)
  Sender: FDA-Public Use
  Company Number: 070523-0000540

PATIENT
  Age: 22 Month
  Sex: Male

DRUGS (8)
  1. DACTINOMYCIN [Suspect]
     Indication: RHABDOMYOSARCOMA
     Dosage: 1.5 MG/M**2;  ; IV
     Route: 042
     Dates: start: 20070314, end: 20070314
  2. DACTINOMYCIN [Suspect]
     Indication: RHABDOMYOSARCOMA
     Dosage: 1.5 MG/M**2;  ; IV
     Route: 042
     Dates: start: 20070404, end: 20070404
  3. VINCRISTINE SULFATE [Suspect]
     Indication: RHABDOMYOSARCOMA
     Dosage: 1.5 MG/M**2; ; IV
     Route: 042
     Dates: start: 20070314, end: 20070314
  4. VINCRISTINE SULFATE [Suspect]
     Indication: RHABDOMYOSARCOMA
     Dosage: 1.5 MG/M**2; ; IV
     Route: 042
     Dates: start: 20070404, end: 20070404
  5. DOXORUBICIN HCL [Suspect]
     Indication: RHABDOMYOSARCOMA
     Dosage: 30 MG/M**2; ; IV
     Route: 042
     Dates: start: 20070314, end: 20070315
  6. DOXORUBICIN HCL [Suspect]
     Indication: RHABDOMYOSARCOMA
     Dosage: 30 MG/M**2; ; IV
     Route: 042
     Dates: start: 20070404, end: 20070405
  7. IFOSFAMIDE [Suspect]
     Indication: RHABDOMYOSARCOMA
     Dosage: 3000 MG/M**2;
     Dates: start: 20070314, end: 20070315
  8. IFOSFAMIDE [Suspect]
     Indication: RHABDOMYOSARCOMA
     Dosage: 3000 MG/M**2;
     Dates: start: 20070404, end: 20070405

REACTIONS (2)
  - FEBRILE BONE MARROW APLASIA [None]
  - STOMATITIS [None]
